FAERS Safety Report 6914707-5 (Version None)
Quarter: 2010Q3

REPORT INFORMATION
  Report Type: 
  Country: None (occurrence: None)
  Receive Date: 20100804
  Receipt Date: 20100804
  Transmission Date: 20110219
  Serious: Yes (Death, Hospitalization)
  Sender: FDA-Public Use
  Company Number: None

PATIENT
  Age: 65 Year
  Sex: Male
  Weight: 93 kg

DRUGS (3)
  1. GEMFIBROZIL [Suspect]
     Dosage: 600 MG BID PO
     Route: 048
     Dates: start: 20080703, end: 20100607
  2. SIMVASTATIN [Suspect]
     Indication: DIABETES MELLITUS
     Dosage: 80 MG AT BEDTIME PO
     Route: 048
     Dates: start: 20080703, end: 20100607
  3. SIMVASTATIN [Suspect]
     Indication: HYPERLIPIDAEMIA
     Dosage: 80 MG AT BEDTIME PO
     Route: 048
     Dates: start: 20080703, end: 20100607

REACTIONS (1)
  - RHABDOMYOLYSIS [None]
